FAERS Safety Report 8896220 (Version 3)
Quarter: 2012Q4

REPORT INFORMATION
  Report Type: 
  Country: GB (occurrence: GB)
  Receive Date: 20121108
  Receipt Date: 20121221
  Transmission Date: 20130627
  Serious: Yes (Hospitalization)
  Sender: FDA-Public Use
  Company Number: GB-PFIZER INC-2012274377

PATIENT
  Age: 74 Year
  Sex: Male

DRUGS (1)
  1. LATANOPROST [Suspect]
     Dosage: 1 Gtt, 1x/day (evenings)
     Route: 047
     Dates: start: 20121102

REACTIONS (1)
  - Intraocular pressure increased [Not Recovered/Not Resolved]
